FAERS Safety Report 14392278 (Version 1)
Quarter: 2018Q1

REPORT INFORMATION
  Report Type: Spontaneous
  Country: RU (occurrence: RU)
  Receive Date: 20180116
  Receipt Date: 20180116
  Transmission Date: 20180509
  Serious: Yes (Death, Hospitalization)
  Sender: FDA-Public Use
  Company Number: RU-SHENZHEN TECHDOW PHARMACEUTICAL CO. LTD-RU-2018TEC0000003

PATIENT
  Age: 79 Year

DRUGS (4)
  1. ALTEPLASE. [Suspect]
     Active Substance: ALTEPLASE
     Dosage: 90 MG, CONTINUOUS INFUSION OVER 2 HOURS
  2. ALTEPLASE. [Suspect]
     Active Substance: ALTEPLASE
     Indication: THROMBOLYSIS
     Dosage: 10 MG, BOLUS VIA CENTRAL LINE
  3. WARFARIN [Suspect]
     Active Substance: WARFARIN
     Indication: ANTICOAGULANT THERAPY
     Dosage: UNK
  4. HEPARIN SODIUM INJECTION USP, PRESERVATIVE FREE [Suspect]
     Active Substance: HEPARIN SODIUM
     Indication: THROMBOLYSIS
     Dosage: 1000 IU/H

REACTIONS (2)
  - Haemorrhage intracranial [Unknown]
  - Subdural haematoma [Fatal]
